FAERS Safety Report 21528963 (Version 5)
Quarter: 2022Q4

REPORT INFORMATION
  Report Type: Report from Study
  Country: AR (occurrence: AR)
  Receive Date: 20221031
  Receipt Date: 20221206
  Transmission Date: 20230112
  Serious: Yes (Life-Threatening, Hospitalization)
  Sender: FDA-Public Use
  Company Number: AR-NOVARTISPH-NVSC2022AR243991

PATIENT
  Age: 5 Year
  Sex: Female

DRUGS (5)
  1. OMNITROPE [Suspect]
     Active Substance: SOMATROPIN
     Indication: Growth hormone deficiency
     Dosage: 0.3 MG
     Route: 065
  2. OMNITROPE [Suspect]
     Active Substance: SOMATROPIN
     Dosage: 0.6 MG, QD
     Route: 058
     Dates: start: 20200213
  3. OMNITROPE [Suspect]
     Active Substance: SOMATROPIN
     Dosage: 0.06 MG
     Route: 058
  4. HYDROCORTISONE [Concomitant]
     Active Substance: HYDROCORTISONE
     Indication: Product used for unknown indication
     Dosage: UNK
     Route: 065
  5. LEVOTHYROXINE [Concomitant]
     Active Substance: LEVOTHYROXINE
     Indication: Hypothyroidism
     Dosage: 50 MG, QD (EVERY MORNING) SINCE 3 YEARS AGO
     Route: 065

REACTIONS (7)
  - Seizure [Recovering/Resolving]
  - Pyrexia [Recovering/Resolving]
  - Eating disorder [Unknown]
  - Hypoglycaemia [Unknown]
  - Abdominal pain [Unknown]
  - Device occlusion [Unknown]
  - Expired device used [Unknown]

NARRATIVE: CASE EVENT DATE: 20221025
